FAERS Safety Report 4539033-3 (Version None)
Quarter: 2004Q4

REPORT INFORMATION
  Report Type: 
  Country: None (occurrence: None)
  Receive Date: 20041222
  Receipt Date: 20041214
  Transmission Date: 20050328
  Serious: Yes (Other)
  Sender: FDA-Public Use
  Company Number: 2004111623

PATIENT
  Age: 71 Year
  Sex: Male
  Weight: 82.5547 kg

DRUGS (7)
  1. ROGAINE [Suspect]
     Indication: HYPOTRICHOSIS
     Dosage: COUPLE SQUIRTS, ONCE, TOPICAL
     Route: 061
     Dates: start: 20041210, end: 20041210
  2. ATENOLOL [Concomitant]
  3. MULTIPLE VITAMINS (ASCORBIC ACID, ERGOCALCIFEROL, FOLIC ACID, RETINOL, [Concomitant]
  4. LINSEED OIL (LINSEED OIL) [Concomitant]
  5. ASCORBIC ACID [Concomitant]
  6. ALLOPURINOL [Concomitant]
  7. QUINAPRIL HCL [Concomitant]

REACTIONS (5)
  - ERYTHEMA [None]
  - PRURITUS [None]
  - SKIN DISORDER [None]
  - SKIN IRRITATION [None]
  - SWELLING FACE [None]
